FAERS Safety Report 4751938-7 (Version None)
Quarter: 2005Q3

REPORT INFORMATION
  Report Type: 
  Country: None (occurrence: None)
  Receive Date: 20050822
  Receipt Date: 20050623
  Transmission Date: 20060218
  Serious: No
  Sender: FDA-Public Use
  Company Number: PHEH2005US07093

PATIENT
  Age: 46 Year
  Sex: Female

DRUGS (4)
  1. ZELNORM [Suspect]
     Indication: IMPAIRED GASTRIC EMPTYING
     Dosage: SEE IMAGE
     Route: 065
     Dates: start: 20050501, end: 20050606
  2. ZELNORM [Suspect]
     Indication: IMPAIRED GASTRIC EMPTYING
     Dosage: SEE IMAGE
     Route: 065
     Dates: start: 20050607
  3. . [Concomitant]
  4. REGLAN [Concomitant]

REACTIONS (2)
  - ABDOMINAL PAIN UPPER [None]
  - DYSGEUSIA [None]
